FAERS Safety Report 18808627 (Version 2)
Quarter: 2021Q1

REPORT INFORMATION
  Report Type: Report from Study
  Country: US (occurrence: US)
  Receive Date: 20210129
  Receipt Date: 20210212
  Transmission Date: 20210419
  Serious: Yes (Death)
  Sender: FDA-Public Use
  Company Number: US-ASTRAZENECA-2021A017245

PATIENT
  Age: 88 Year
  Sex: Male
  Weight: 90.7 kg

DRUGS (1)
  1. LYNPARZA [Suspect]
     Active Substance: OLAPARIB
     Indication: PROSTATE CANCER METASTATIC
     Route: 048
     Dates: start: 20170816, end: 20210108

REACTIONS (4)
  - Fatigue [Unknown]
  - Anaemia [Unknown]
  - Drug intolerance [Unknown]
  - Feeling abnormal [Unknown]
